FAERS Safety Report 16904734 (Version 1)
Quarter: 2019Q4

REPORT INFORMATION
  Report Type: Report from Study
  Country: US (occurrence: US)
  Receive Date: 20191010
  Receipt Date: 20191010
  Transmission Date: 20200122
  Serious: Yes (Other)
  Sender: FDA-Public Use
  Company Number: US-GRAVITI PHARMACEUTICALS PRIVATE LIMITED-2075514

PATIENT
  Age: 55 Year
  Sex: Female

DRUGS (1)
  1. ATORVASTATIN CALCIUM. [Suspect]
     Active Substance: ATORVASTATIN CALCIUM
     Indication: CORONARY ARTERY DISEASE
     Route: 048

REACTIONS (5)
  - Erythema [Recovered/Resolved]
  - Rash [Recovered/Resolved]
  - Dermatomyositis [Recovered/Resolved]
  - Dermatitis [Recovered/Resolved]
  - Muscular weakness [Recovered/Resolved]
